FAERS Safety Report 7328183-4 (Version None)
Quarter: 2011Q1

REPORT INFORMATION
  Report Type: 
  Country: None (occurrence: None)
  Receive Date: 20110303
  Receipt Date: 20110303
  Transmission Date: 20110831
  Serious: Yes (Hospitalization)
  Sender: FDA-Public Use
  Company Number: PHHO2010SE05613

PATIENT
  Sex: Male
  Weight: 63.2 kg

DRUGS (5)
  1. PLACEBO [Suspect]
     Indication: CARCINOID TUMOUR
     Dosage: PLACEBO
     Route: 048
     Dates: start: 20080123, end: 20091005
  2. TPN [Suspect]
  3. SANDOSTATIN LAR [Concomitant]
     Indication: CARCINOID TUMOUR
  4. TPN [Concomitant]
     Indication: SHORT-BOWEL SYNDROME
  5. RAD 666 [Suspect]
     Indication: CARCINOID TUMOUR
     Dosage: 10 MG
     Route: 048
     Dates: start: 20091126, end: 20100414

REACTIONS (4)
  - ASPARTATE AMINOTRANSFERASE INCREASED [None]
  - BLOOD ALKALINE PHOSPHATASE INCREASED [None]
  - ALANINE AMINOTRANSFERASE INCREASED [None]
  - BLOOD BILIRUBIN INCREASED [None]
